FAERS Safety Report 24705144 (Version 5)
Quarter: 2025Q1

REPORT INFORMATION
  Report Type: Report from Study
  Country: BR (occurrence: BR)
  Receive Date: 20241206
  Receipt Date: 20250225
  Transmission Date: 20250408
  Serious: Yes (Other)
  Sender: NOVARTIS
  Company Number: BR-002147023-NVSC2024BR231797

PATIENT
  Sex: Female

DRUGS (3)
  1. KISQALI [Suspect]
     Active Substance: RIBOCICLIB
     Indication: Product used for unknown indication
     Route: 065
     Dates: start: 20241129
  2. KISQALI [Suspect]
     Active Substance: RIBOCICLIB
     Route: 065
  3. KISQALI [Suspect]
     Active Substance: RIBOCICLIB
     Route: 065
     Dates: start: 20250102

REACTIONS (7)
  - Cholecystitis [Unknown]
  - Nausea [Recovering/Resolving]
  - Malaise [Unknown]
  - Decreased immune responsiveness [Unknown]
  - Poor venous access [Unknown]
  - Memory impairment [Unknown]
  - Panic attack [Recovered/Resolved]
